FAERS Safety Report 21112306 (Version 1)
Quarter: 2022Q3

REPORT INFORMATION
  Report Type: Spontaneous
  Country: US (occurrence: None)
  Receive Date: 20220721
  Receipt Date: 20220721
  Transmission Date: 20221026
  Serious: Yes (Hospitalization)
  Sender: FDA-Public Use
  Company Number: None

PATIENT
  Age: 87 Year
  Sex: Male

DRUGS (3)
  1. RIVAROXABAN [Suspect]
     Active Substance: RIVAROXABAN
     Indication: Atrial fibrillation
     Dates: start: 20140512, end: 20211216
  2. RIVAROXABAN [Suspect]
     Active Substance: RIVAROXABAN
     Indication: Deep vein thrombosis
  3. ASPIRIN [Suspect]
     Active Substance: ASPIRIN
     Indication: Vascular device user
     Dates: start: 20040826, end: 20211216

REACTIONS (5)
  - Anaemia [None]
  - Gastric haemorrhage [None]
  - Chest discomfort [None]
  - Dyspnoea exertional [None]
  - Therapy cessation [None]

NARRATIVE: CASE EVENT DATE: 20211116
